FAERS Safety Report 20114129 (Version 5)
Quarter: 2022Q1

REPORT INFORMATION
  Report Type: Report from Study
  Country: US (occurrence: US)
  Receive Date: 20211125
  Receipt Date: 20220223
  Transmission Date: 20220424
  Serious: Yes (Hospitalization)
  Sender: FDA-Public Use
  Company Number: US-CELGENE-USA-20210906203

PATIENT
  Age: 63 Year
  Sex: Female
  Weight: 125.6 kg

DRUGS (8)
  1. AZACITIDINE [Suspect]
     Active Substance: AZACITIDINE
     Indication: Myelodysplastic syndrome
     Dosage: 18.75 MILLIGRAM/SQ. METER
     Route: 041
     Dates: start: 20210907, end: 20210915
  2. PLACEBO [Suspect]
     Active Substance: UNSPECIFIED INGREDIENT
     Indication: Myelodysplastic syndrome
     Route: 048
     Dates: start: 20210907, end: 20210920
  3. PALONOSETRON [Concomitant]
     Active Substance: PALONOSETRON
     Indication: Premedication
     Route: 041
     Dates: start: 20210907, end: 20210914
  4. POTASSIUM CHLORIDE [Concomitant]
     Active Substance: POTASSIUM CHLORIDE
     Indication: Blood potassium decreased
     Route: 048
     Dates: start: 20210911
  5. PROPAFENONE [Concomitant]
     Active Substance: PROPAFENONE
     Indication: Atrial fibrillation
     Dosage: 675 MILLIGRAM
     Route: 048
     Dates: start: 20180628
  6. INSULIN ASPART [Concomitant]
     Active Substance: INSULIN ASPART
     Indication: Diabetes mellitus
     Dosage: 40 UNITS
     Route: 030
     Dates: start: 20210119
  7. GLUCOTROL [Concomitant]
     Active Substance: GLIPIZIDE
     Indication: Diabetes mellitus
     Dosage: 10 MILLIGRAM
     Route: 048
     Dates: start: 20210119
  8. ELIQUIS [Concomitant]
     Active Substance: APIXABAN
     Indication: Atrial fibrillation
     Dosage: 10 MILLIGRAM
     Route: 048
     Dates: start: 20210109

REACTIONS (1)
  - Myelodysplastic syndrome [Not Recovered/Not Resolved]

NARRATIVE: CASE EVENT DATE: 20210912
